FAERS Safety Report 10076080 (Version 4)
Quarter: 2014Q2

REPORT INFORMATION
  Report Type: Spontaneous
  Country: US (occurrence: US)
  Receive Date: 20140414
  Receipt Date: 20140509
  Transmission Date: 20141212
  Serious: No
  Sender: FDA-Public Use
  Company Number: US-PFIZER INC-2014099867

PATIENT
  Age: 71 Year
  Sex: Female
  Weight: 102.4 kg

DRUGS (7)
  1. REVATIO [Suspect]
     Indication: CARDIAC DISORDER
     Dosage: 20 MG, 3X/DAY
     Dates: start: 2013, end: 20140405
  2. REVATIO [Suspect]
     Indication: LUNG DISORDER
  3. METFORMIN [Concomitant]
     Indication: DIABETES MELLITUS
     Dosage: 500 MG, 2X/DAY
  4. LASIX [Concomitant]
     Indication: HYPERTENSION
     Dosage: UNK
  5. ZESTRIL [Concomitant]
     Indication: HYPERTENSION
     Dosage: UNK
  6. PLAVIX [Concomitant]
     Dosage: UNK, DAILY
  7. ASPIRIN [Concomitant]
     Dosage: UNK, DAILY

REACTIONS (4)
  - Dyspnoea [Unknown]
  - Feeling abnormal [Unknown]
  - Malaise [Unknown]
  - Expired product administered [Unknown]
